FAERS Safety Report 11171312 (Version 1)
Quarter: 2015Q2

REPORT INFORMATION
  Report Type: Spontaneous
  Country: US (occurrence: US)
  Receive Date: 20150608
  Receipt Date: 20150608
  Transmission Date: 20150821
  Serious: Yes (Hospitalization)
  Sender: FDA-Public Use
  Company Number: US-PFIZER INC-2015057944

PATIENT
  Age: 46 Year
  Sex: Female

DRUGS (1)
  1. TENORMIN [Suspect]
     Active Substance: ATENOLOL
     Dosage: UNK
     Dates: end: 19980122

REACTIONS (2)
  - Drug hypersensitivity [Unknown]
  - Heart rate decreased [Unknown]

NARRATIVE: CASE EVENT DATE: 19980122
